FAERS Safety Report 4307206-0 (Version None)
Quarter: 2004Q1

REPORT INFORMATION
  Report Type: 
  Country: None (occurrence: None)
  Receive Date: 20040225
  Receipt Date: 20040211
  Transmission Date: 20041129
  Serious: Yes (Death)
  Sender: FDA-Public Use
  Company Number: 204679

PATIENT
  Sex: Male

DRUGS (3)
  1. RITUXAN [Suspect]
     Indication: LYMPHOPROLIFERATIVE DISORDER
     Dosage: 375 MG/M2, 1/WEEK, INTRAVENOUS
     Route: 042
  2. SEPTRA [Concomitant]
  3. IVIG (GLOBULIN, IMMUNE) [Concomitant]

REACTIONS (2)
  - CYTOMEGALOVIRUS INFECTION [None]
  - SEPSIS [None]
